FAERS Safety Report 4763370-0 (Version None)
Quarter: 2005Q3

REPORT INFORMATION
  Report Type: 
  Country: None (occurrence: None)
  Receive Date: 20050908
  Receipt Date: 20050905
  Transmission Date: 20060218
  Serious: Yes (Hospitalization)
  Sender: FDA-Public Use
  Company Number: 2005CG01471

PATIENT
  Age: 69 Year
  Sex: Male
  Weight: 82 kg

DRUGS (4)
  1. CRESTOR [Suspect]
     Indication: HYPERCHOLESTEROLAEMIA
     Route: 048
     Dates: end: 20041221
  2. KETOPROFEN [Suspect]
     Indication: NECK PAIN
     Route: 048
     Dates: start: 20041220, end: 20041221
  3. FOZIRETIC [Suspect]
     Indication: HYPERTENSION
     Route: 048
     Dates: end: 20041221
  4. DAFALGAN [Suspect]
     Indication: HEADACHE
     Route: 048
     Dates: start: 20041220, end: 20041221

REACTIONS (6)
  - CONDITION AGGRAVATED [None]
  - DECREASED ACTIVITY [None]
  - INFLAMMATION [None]
  - MENINGITIS STREPTOCOCCAL [None]
  - MUTISM [None]
  - SEPSIS [None]
